FAERS Safety Report 14531683 (Version 2)
Quarter: 2018Q1

REPORT INFORMATION
  Report Type: Spontaneous
  Country: US (occurrence: US)
  Receive Date: 20180214
  Receipt Date: 20180309
  Transmission Date: 20180509
  Serious: Yes (Death)
  Sender: FDA-Public Use
  Company Number: US-TAIHO ONCOLOGY INC-EU-2018-00152

PATIENT
  Age: 79 Year
  Sex: Female

DRUGS (15)
  1. OXYCODONE [Concomitant]
     Active Substance: OXYCODONE
     Dosage: 1 TABLET PRN
     Route: 048
     Dates: start: 20171129
  2. PREDNISONE. [Concomitant]
     Active Substance: PREDNISONE
     Route: 048
     Dates: start: 20171129
  3. FLOMAX [Concomitant]
     Active Substance: TAMSULOSIN HYDROCHLORIDE
     Dosage: BEFORE SLEEP
     Route: 048
     Dates: start: 20171117
  4. ADVIL [Concomitant]
     Active Substance: IBUPROFEN
     Route: 048
  5. HYDROCHLOROTHIAZIDE. [Concomitant]
     Active Substance: HYDROCHLOROTHIAZIDE
     Route: 048
     Dates: start: 20171117
  6. XARELTO [Concomitant]
     Active Substance: RIVAROXABAN
     Route: 048
     Dates: start: 20171011
  7. HALDOL [Concomitant]
     Active Substance: HALOPERIDOL
     Indication: ANXIETY
     Dosage: 2 MG/ML CONCENTRATE - 0.5 TO 1 ML AS NEEDED
     Route: 048
     Dates: start: 20171212
  8. HALDOL [Concomitant]
     Active Substance: HALOPERIDOL
     Indication: AGITATION
  9. PARACETAMOL/HYDROCODONE BITARTRATE [Concomitant]
     Dosage: 5-325 MG, 1-2 TABLETS PRN
     Route: 048
     Dates: start: 20171129
  10. ROXANOL [Concomitant]
     Active Substance: MORPHINE SULFATE
     Indication: PAIN
     Dosage: 20-40 MG EVERY 1-2 HOURS AS NEEDED
     Route: 048
     Dates: start: 20171212
  11. XARELTO [Concomitant]
     Active Substance: RIVAROXABAN
     Route: 048
     Dates: start: 201711
  12. ANTICOAGULANT CITRATE DEXTROSE SOLUTION (ACD) NOS [Concomitant]
     Active Substance: CITRIC ACID MONOHYDRATE\DEXTROSE\SODIUM CITRATE
     Dosage: AS NEEDED
  13. LONSURF [Suspect]
     Active Substance: TIPIRACIL HYDROCHLORIDE\TRIFLURIDINE
     Indication: COLON CANCER
     Route: 048
     Dates: start: 20170413, end: 2017
  14. DIFLUCAN [Concomitant]
     Active Substance: FLUCONAZOLE
     Dosage: X10 DAYS (WHEN TAKING CHEMO)
     Route: 048
     Dates: start: 20170526
  15. LACTULOSE. [Concomitant]
     Active Substance: LACTULOSE
     Dosage: 10 GRAM/15 ML SOLUTION
     Route: 048
     Dates: start: 20170124

REACTIONS (1)
  - Disease progression [Fatal]

NARRATIVE: CASE EVENT DATE: 20171213
